FAERS Safety Report 18131234 (Version 3)
Quarter: 2020Q4

REPORT INFORMATION
  Report Type: Spontaneous
  Country: US (occurrence: US)
  Receive Date: 20200810
  Receipt Date: 20201116
  Transmission Date: 20210113
  Serious: Yes (Other)
  Sender: FDA-Public Use
  Company Number: US-BAYER-2020-156601

PATIENT
  Age: 32 Year
  Sex: Male

DRUGS (3)
  1. JIVI [Suspect]
     Active Substance: DAMOCTOCOG ALFA PEGOL
     Indication: HAEMOPHILIA
     Dosage: 3027, 2269 UN
     Route: 042
  2. JIVI [Suspect]
     Active Substance: DAMOCTOCOG ALFA PEGOL
     Indication: HAEMOPHILIA
     Dosage: 5100 U
  3. JIVI [Suspect]
     Active Substance: DAMOCTOCOG ALFA PEGOL
     Indication: HAEMOPHILIA
     Dosage: 1 DF, OW
     Route: 042
     Dates: start: 202006, end: 202008

REACTIONS (8)
  - Haemarthrosis [None]
  - Haemarthrosis [None]
  - Limb injury [None]
  - Haemorrhage [None]
  - Haemarthrosis [None]
  - Tooth fracture [None]
  - Fall [None]
  - Dizziness [None]

NARRATIVE: CASE EVENT DATE: 202004
